FAERS Safety Report 8950623 (Version 3)
Quarter: 2013Q1

REPORT INFORMATION
  Report Type: Spontaneous
  Country: GB (occurrence: None)
  Receive Date: 20121127
  Receipt Date: 20130206
  Transmission Date: 20140127
  Serious: Yes (Other)
  Sender: FDA-Public Use
  Company Number: GER/UKI/12/0026703

PATIENT
  Age: 38 Year
  Sex: Male

DRUGS (6)
  1. OMEPRAZOLE (OMEPRAZOLE) [Suspect]
     Indication: ABDOMINAL PAIN
     Dates: start: 201106
  2. NITROFURANTOIN [Suspect]
     Indication: PRODUCT USED FOR UNKNOWN INDICATION
     Dates: start: 201111
  3. CIPROFLOXACIN (CIPROFLOXACIN) [Suspect]
     Indication: PRODUCT USED FOR UNKNOWN INDICATION
     Dates: start: 201206
  4. DOXYCYCLINE (DOXYCYCLINE) [Suspect]
     Indication: ANXIETY
     Dates: start: 20111111
  5. MINOCYCLINE (MINOCYCLINE) [Suspect]
  6. SEROQUEL [Suspect]
     Indication: ANXIETY

REACTIONS (17)
  - Dehydration [None]
  - Skin depigmentation [None]
  - Malaise [None]
  - Skin exfoliation [None]
  - Gastrooesophageal reflux disease [None]
  - Hair colour changes [None]
  - Alopecia [None]
  - Headache [None]
  - Tooth injury [None]
  - Drug ineffective [None]
  - Melanocytic naevus [None]
  - Melanocytic naevus [None]
  - Gastric ulcer [None]
  - Photosensitivity reaction [None]
  - Chromaturia [None]
  - Dysbacteriosis [None]
  - Irritable bowel syndrome [None]
